FAERS Safety Report 22867550 (Version 2)
Quarter: 2023Q4

REPORT INFORMATION
  Report Type: Spontaneous
  Country: CA (occurrence: CA)
  Receive Date: 20230825
  Receipt Date: 20231123
  Transmission Date: 20240109
  Serious: Yes (Death)
  Sender: FDA-Public Use
  Company Number: CA-PFIZER INC-2021880934

PATIENT
  Age: 61 Year
  Sex: Male

DRUGS (1)
  1. LORBRENA [Suspect]
     Active Substance: LORLATINIB
     Indication: Non-small cell lung cancer
     Dosage: UNK
     Dates: start: 20210820

REACTIONS (2)
  - Neoplasm progression [Fatal]
  - Off label use [Unknown]
